FAERS Safety Report 5553708-9 (Version None)
Quarter: 2007Q4

REPORT INFORMATION
  Report Type: 
  Country: None (occurrence: None)
  Receive Date: 20071213
  Receipt Date: 20071207
  Transmission Date: 20080405
  Serious: Yes (Other)
  Sender: FDA-Public Use
  Company Number: PHEH2007US15628

PATIENT
  Age: 80 Year
  Sex: Female

DRUGS (17)
  1. DIOVAN HCT [Suspect]
     Indication: HYPERTENSION
     Dosage: 80 MG VAL, 12.5 MG HCT, QD
     Route: 048
     Dates: end: 20071120
  2. DIOVAN HCT [Suspect]
     Dosage: TWO TABLETS OF 80/12.5 MG, ONCE/SINGLE
     Route: 048
     Dates: start: 20071121, end: 20071121
  3. DIOVAN HCT [Suspect]
     Dosage: 80 MG VAL, 12.5 MG HCT, QD
     Route: 048
     Dates: start: 20071122
  4. NAMENDA [Suspect]
     Indication: DEMENTIA
     Dosage: 5 MG, QD
     Route: 048
     Dates: start: 20071022, end: 20071028
  5. NAMENDA [Suspect]
     Dosage: 5 MG, BID
     Route: 048
     Dates: start: 20071029, end: 20071104
  6. NAMENDA [Suspect]
     Dosage: 15 MG, QD
     Route: 048
     Dates: start: 20071105, end: 20071111
  7. NAMENDA [Suspect]
     Dosage: 20 MG, ONCE/SINGLE
     Route: 048
     Dates: start: 20071121, end: 20071121
  8. NAMENDA [Suspect]
     Dosage: 10 MG, BID
     Route: 048
     Dates: start: 20071112, end: 20071120
  9. NAMENDA [Suspect]
     Dosage: 10 MG, BID
     Route: 048
     Dates: start: 20071122
  10. ACTOS [Suspect]
     Indication: DIABETES MELLITUS
     Dosage: 45 MG, QD
     Route: 048
     Dates: end: 20071120
  11. ACTOS [Suspect]
     Dosage: 90 MG, ONCE/SINGLE
     Route: 048
     Dates: start: 20071121, end: 20071121
  12. ACTOS [Suspect]
     Dosage: 45 MG, QD
     Route: 048
     Dates: start: 20071122
  13. AMARYL [Suspect]
     Indication: DIABETES MELLITUS
     Dosage: 0.5 MG, QD
     Route: 048
     Dates: end: 20071120
  14. AMARYL [Suspect]
     Dosage: 1 MG, ONCE/SINGLE
     Route: 048
     Dates: start: 20071121, end: 20071121
  15. AMARYL [Suspect]
     Dosage: 0.5 MG, QD
     Route: 048
     Dates: start: 20071122
  16. ARICEPT [Concomitant]
     Dosage: 10 MG, QD
     Route: 048
  17. ZOCOR [Concomitant]
     Dosage: 40 MG, QD
     Route: 048

REACTIONS (4)
  - ANXIETY [None]
  - HYPOGLYCAEMIA [None]
  - INCORRECT DOSE ADMINISTERED [None]
  - TREMOR [None]
